FAERS Safety Report 9526565 (Version 2)
Quarter: 2013Q3

REPORT INFORMATION
  Report Type: Spontaneous
  Country: US (occurrence: US)
  Receive Date: 20130916
  Receipt Date: 20130916
  Transmission Date: 20140515
  Serious: Yes (Hospitalization, Other)
  Sender: FDA-Public Use
  Company Number: US-PFIZER INC-2013130117

PATIENT
  Age: 57 Year
  Sex: Male

DRUGS (16)
  1. DILANTIN [Suspect]
     Indication: CONVULSION
     Dosage: 300 MG, 1X/DAY, BEDTIME
     Route: 048
     Dates: start: 20040916, end: 20041108
  2. DILANTIN [Suspect]
     Indication: CONVULSION
     Dosage: 500 MG, UNK
     Route: 042
     Dates: start: 20041030, end: 20041030
  3. ELAVIL [Concomitant]
     Dosage: 25 MG, 1X/DAY, BEDTIME
     Route: 048
     Dates: start: 20041030, end: 20041108
  4. PAXIL [Concomitant]
     Dosage: 30 MG, 1X/DAY
     Route: 048
     Dates: start: 20041030, end: 20041108
  5. MEVACOR [Concomitant]
     Dosage: 40 MG, 1X/DAY, BEDTIME
     Route: 048
     Dates: start: 20041030, end: 20041108
  6. PROCARDIA XL [Concomitant]
     Dosage: 30 MG, 1X/DAY
     Route: 048
     Dates: start: 20041030
  7. ATENOLOL [Concomitant]
     Indication: BLOOD PRESSURE
     Dosage: 50 MG, 1X/DAY
     Dates: start: 20041030
  8. LISINOPRIL [Concomitant]
     Indication: BLOOD PRESSURE
     Dosage: 10 MG, 2X/DAY
     Route: 048
     Dates: start: 20041030
  9. LASIX [Concomitant]
     Dosage: 20 MG, THREE TIMES A WEEK
     Dates: start: 20041030
  10. THERAGRAN [Concomitant]
     Dosage: UNK
     Route: 048
     Dates: start: 20041101, end: 20041111
  11. ATROPINE [Concomitant]
     Indication: BRADYCARDIA
     Dosage: UNK
     Route: 042
     Dates: start: 20041101
  12. LIDOCAINE [Concomitant]
     Indication: VENTRICULAR TACHYCARDIA
     Dosage: UNK
     Dates: start: 20041101
  13. XYLOCAINE [Concomitant]
     Dosage: UNK
     Dates: start: 20041101
  14. VITAMIN B2 [Concomitant]
     Dosage: 25 MG, 1X/DAY
     Route: 048
     Dates: start: 20041101
  15. LOVENOX [Concomitant]
     Dosage: 80MG/0.8ML
     Route: 058
     Dates: start: 20041102, end: 20041107
  16. MEGACE [Concomitant]
     Dosage: 400MG/10ML
     Route: 048
     Dates: start: 20041102, end: 20041111

REACTIONS (2)
  - Stevens-Johnson syndrome [Recovered/Resolved]
  - Toxic epidermal necrolysis [Recovered/Resolved]
